FAERS Safety Report 23268268 (Version 2)
Quarter: 2024Q1

REPORT INFORMATION
  Report Type: Spontaneous
  Country: AU (occurrence: AU)
  Receive Date: 20231206
  Receipt Date: 20240229
  Transmission Date: 20240410
  Serious: Yes (Hospitalization)
  Sender: FDA-Public Use
  Company Number: AU-PFIZER INC-PV202300193291

PATIENT
  Age: 34 Year
  Sex: Male

DRUGS (6)
  1. VORICONAZOLE [Interacting]
     Active Substance: VORICONAZOLE
     Indication: Pyrexia
     Dosage: 6 MG/KG, 2X/DAY (12-HOURLY FOR TWO DOSES)
     Route: 048
  2. VORICONAZOLE [Interacting]
     Active Substance: VORICONAZOLE
     Indication: Fungal infection
     Dosage: 4 MG/KG, 2X/DAY
     Route: 048
  3. PALIPERIDONE [Interacting]
     Active Substance: PALIPERIDONE
     Indication: Schizophrenia
     Dosage: 3 MG, DAILY (DAY 1)
  4. PALIPERIDONE [Interacting]
     Active Substance: PALIPERIDONE
     Dosage: UP-TITRATED FROM 6 TO 9 MG OVER 10 DAYS (DAY 10)
  5. PALIPERIDONE [Interacting]
     Active Substance: PALIPERIDONE
     Dosage: RESTARTED AT 3 MG DAILY AND UP-TITRATED TO 6 MG (DAY 16)
  6. PALIPERIDONE [Interacting]
     Active Substance: PALIPERIDONE
     Dosage: 6 MG, DAILY

REACTIONS (3)
  - Drug interaction [Unknown]
  - Extrapyramidal disorder [Recovered/Resolved]
  - Drug level increased [Unknown]
